FAERS Safety Report 7770790-9 (Version None)
Quarter: 2011Q3

REPORT INFORMATION
  Report Type: 
  Country: None (occurrence: None)
  Receive Date: 20110922
  Receipt Date: 20110209
  Transmission Date: 20111222
  Serious: Yes (Other)
  Sender: FDA-Public Use
  Company Number: US-ASTRAZENECA-2007UW03645

PATIENT
  Age: 73 Year
  Sex: Female
  Weight: 71.2 kg

DRUGS (7)
  1. RISPERDAL [Concomitant]
  2. CITALOPRAM HYDROBROMIDE [Concomitant]
  3. SEROQUEL [Suspect]
     Indication: DEPRESSION
     Dosage: 50, 400MG/DLY
     Route: 048
     Dates: start: 19990101, end: 20060401
  4. CLOZAPINE [Concomitant]
     Dates: start: 20050101, end: 20070101
  5. LITHIUM CARBONATE [Concomitant]
  6. SEROQUEL [Suspect]
     Indication: BIPOLAR DISORDER
     Dosage: 50, 400MG/DLY
     Route: 048
     Dates: start: 19990101, end: 20060401
  7. CARBACAZEPINE [Concomitant]

REACTIONS (2)
  - TYPE 2 DIABETES MELLITUS [None]
  - CARDIAC FAILURE [None]
